FAERS Safety Report 18731105 (Version 2)
Quarter: 2021Q1

REPORT INFORMATION
  Report Type: Spontaneous
  Country: IT (occurrence: IT)
  Receive Date: 20210112
  Receipt Date: 20210113
  Transmission Date: 20210419
  Serious: Yes (Other)
  Sender: FDA-Public Use
  Company Number: IT-TEVA-2021-IT-1866896

PATIENT
  Age: 4 Year
  Sex: Male
  Weight: 18 kg

DRUGS (14)
  1. LASIX [Concomitant]
     Active Substance: FUROSEMIDE
  2. BACTRIM [Concomitant]
     Active Substance: SULFAMETHOXAZOLE\TRIMETHOPRIM
  3. CYTARABINE. [Suspect]
     Active Substance: CYTARABINE
     Indication: BURKITT^S LYMPHOMA
     Dosage: 112.5MG
     Route: 042
     Dates: start: 20200405, end: 20200406
  4. UROMITEXAN [Concomitant]
     Active Substance: MESNA
  5. IFOSFAMIDE. [Suspect]
     Active Substance: IFOSFAMIDE
     Indication: BURKITT^S LYMPHOMA
     Dosage: 600MG
     Route: 042
     Dates: start: 20200402, end: 20200406
  6. LEDERFOLIN [Concomitant]
     Active Substance: LEUCOVORIN CALCIUM
  7. ETOPOSIDE. [Suspect]
     Active Substance: ETOPOSIDE
     Indication: BURKITT^S LYMPHOMA
     Dosage: 75MG
     Route: 042
     Dates: start: 20200405, end: 20200406
  8. DEXAMETHASONE. [Concomitant]
     Active Substance: DEXAMETHASONE
  9. ZOFRAN [Concomitant]
     Active Substance: ONDANSETRON HYDROCHLORIDE
  10. PANTOPRAZOLE [Concomitant]
     Active Substance: PANTOPRAZOLE
  11. METHOTREXATE. [Suspect]
     Active Substance: METHOTREXATE
     Indication: BURKITT^S LYMPHOMA
     Dosage: 3750MG
     Route: 042
     Dates: start: 20200402, end: 20200403
  12. VINCRISTINE [Suspect]
     Active Substance: VINCRISTINE
     Indication: BURKITT^S LYMPHOMA
     Dosage: 1.12MG
     Route: 042
     Dates: start: 20200402, end: 20200402
  13. DEURSIL [Concomitant]
     Active Substance: URSODIOL
  14. FASTURTEC [Concomitant]
     Active Substance: RASBURICASE

REACTIONS (2)
  - Haematemesis [Recovering/Resolving]
  - Epistaxis [Recovering/Resolving]

NARRATIVE: CASE EVENT DATE: 20200406
